FAERS Safety Report 5796181-8 (Version None)
Quarter: 2008Q3

REPORT INFORMATION
  Report Type: 
  Country: None (occurrence: None)
  Receive Date: 20080701
  Receipt Date: 20080620
  Transmission Date: 20090109
  Serious: Yes (Hospitalization)
  Sender: FDA-Public Use
  Company Number: US-JNJFOC-20080605305

PATIENT
  Sex: Male
  Weight: 104.33 kg

DRUGS (11)
  1. REMICADE [Suspect]
     Dosage: INITIATED ^2 YEARS AGO^
     Route: 042
  2. REMICADE [Suspect]
     Indication: RHEUMATOID ARTHRITIS
     Dosage: INITIATED ^2 YEARS AGO^
     Route: 042
  3. MOMETASONE FUROATE [Concomitant]
  4. ARIPIPRAZOLE [Concomitant]
  5. LISINOPRIL [Concomitant]
  6. GEMFIBROZIL [Concomitant]
  7. PREDNISONE [Concomitant]
     Indication: RHEUMATOID ARTHRITIS
  8. PLAVIX [Concomitant]
     Indication: RHEUMATOID ARTHRITIS
  9. DICLOFENAC SODIUM [Concomitant]
  10. ATENOLOL [Concomitant]
  11. SIMVASTATIN [Concomitant]

REACTIONS (3)
  - DYSPNOEA [None]
  - NIGHT SWEATS [None]
  - PANIC ATTACK [None]
